FAERS Safety Report 17267170 (Version 1)
Quarter: 2020Q1

REPORT INFORMATION
  Report Type: Spontaneous
  Country: US (occurrence: US)
  Receive Date: 20200114
  Receipt Date: 20200114
  Transmission Date: 20200409
  Serious: Yes (Death, Life-Threatening, Hospitalization, Other)
  Sender: FDA-Public Use
  Company Number: US-BAYER-2020-002072

PATIENT
  Age: 49 Year
  Sex: Female

DRUGS (3)
  1. PARACETAMOL [Suspect]
     Active Substance: ACETAMINOPHEN
     Dosage: 2-3 TABLETS EVERY 4-6 HOURS
  2. PARACETAMOL [Suspect]
     Active Substance: ACETAMINOPHEN
     Dosage: UNK
     Route: 048
  3. FLUID [Suspect]
     Active Substance: UNSPECIFIED INGREDIENT
     Dosage: 3 L
     Route: 042

REACTIONS (21)
  - Alanine aminotransferase increased [None]
  - Hypoglycaemia [None]
  - Acute respiratory distress syndrome [None]
  - Intentional overdose [Fatal]
  - Blood alkaline phosphatase increased [None]
  - Corneal reflex decreased [None]
  - Blood bilirubin increased [None]
  - Tachypnoea [None]
  - Ascites [None]
  - Completed suicide [Fatal]
  - Drug-induced liver injury [None]
  - Blood lactate dehydrogenase increased [None]
  - Aspartate aminotransferase increased [None]
  - Dysarthria [None]
  - Splenic infarction [None]
  - Small intestinal obstruction [None]
  - Brain oedema [None]
  - Toxicity to various agents [Fatal]
  - Pancreatitis acute [None]
  - Confusional state [None]
  - Pneumonia aspiration [None]
